FAERS Safety Report 17680746 (Version 2)
Quarter: 2020Q2

REPORT INFORMATION
  Report Type: Spontaneous
  Country: DE (occurrence: DE)
  Receive Date: 20200417
  Receipt Date: 20200515
  Transmission Date: 20200714
  Serious: Yes (Life-Threatening, Disabling, Other)
  Sender: FDA-Public Use
  Company Number: DE-MYLANLABS-2020M1038892

PATIENT
  Age: 25 Year
  Sex: Male

DRUGS (3)
  1. SERTRALINE [Concomitant]
     Active Substance: SERTRALINE HYDROCHLORIDE
     Indication: MAJOR DEPRESSION
     Dosage: UNK
  2. VENLAFAXINE [Suspect]
     Active Substance: VENLAFAXINE HYDROCHLORIDE
     Indication: DEPRESSION
     Dosage: 150 MILLIGRAM, QD
     Route: 065
  3. VENLAFAXINE [Suspect]
     Active Substance: VENLAFAXINE HYDROCHLORIDE
     Indication: MAJOR DEPRESSION
     Dosage: INITIAL DAILY DOSE OF 37.5MG GRADUALLY INCREASED
     Route: 065

REACTIONS (9)
  - Nausea [Recovered/Resolved]
  - Self-injurious ideation [Unknown]
  - Restlessness [Unknown]
  - Drug withdrawal syndrome [Recovered/Resolved]
  - Obsessive-compulsive disorder [Recovered/Resolved]
  - Adverse reaction [Recovered/Resolved]
  - Headache [Unknown]
  - Dizziness [Unknown]
  - Suicidal ideation [Unknown]
